FAERS Safety Report 11064291 (Version 2)
Quarter: 2015Q2

REPORT INFORMATION
  Report Type: Spontaneous
  Country: JP (occurrence: JP)
  Receive Date: 20150424
  Receipt Date: 20150611
  Transmission Date: 20150821
  Serious: Yes (Death)
  Sender: FDA-Public Use
  Company Number: JP-MALLINCKRODT-T201502144

PATIENT
  Age: 66 Year
  Sex: Male
  Weight: 56 kg

DRUGS (14)
  1. METHADONE [Suspect]
     Active Substance: METHADONE HYDROCHLORIDE
     Indication: CANCER PAIN
     Dosage: 5 MG, (15 MG DAILY DOSE)
     Route: 048
     Dates: start: 20140305, end: 20140311
  2. FENTANYL. [Concomitant]
     Active Substance: FENTANYL
     Dosage: 0.06 - 0.09MG, P.R.N.
     Route: 051
     Dates: start: 20140304
  3. MAGMITT [Concomitant]
     Active Substance: MAGNESIUM OXIDE
     Dosage: 1980MG
     Route: 048
     Dates: end: 20140408
  4. NOVAMIN [Concomitant]
     Active Substance: PROCHLORPERAZINE MALEATE
     Dosage: 15MG
     Route: 048
     Dates: end: 20140313
  5. LYRICA [Concomitant]
     Active Substance: PREGABALIN
     Dosage: 300MG
     Route: 048
     Dates: end: 20140408
  6. LORAZEPAM. [Concomitant]
     Active Substance: LORAZEPAM
     Dosage: 0.5MG
     Route: 048
     Dates: end: 20140327
  7. METHADONE [Suspect]
     Active Substance: METHADONE HYDROCHLORIDE
     Dosage: 10 MG, (20 MG DAILY DOSE)
     Route: 048
     Dates: start: 20140312, end: 20140408
  8. MORPHINE [Concomitant]
     Active Substance: MORPHINE
     Dosage: 36MG
     Route: 058
     Dates: start: 20140407, end: 20140408
  9. CELECOX [Concomitant]
     Active Substance: CELECOXIB
     Dosage: 200MG
     Route: 048
     Dates: end: 20140408
  10. CALONAL [Concomitant]
     Active Substance: ACETAMINOPHEN
     Dosage: 1800MG
     Route: 048
     Dates: end: 20140313
  11. SULFAMETHOXAZOLE AND TRIMETHOPRIM [Concomitant]
     Active Substance: SULFAMETHOXAZOLE\TRIMETHOPRIM
     Dosage: 1 DF
     Route: 048
     Dates: start: 20140321, end: 20140408
  12. DECADRON [Concomitant]
     Active Substance: DEXAMETHASONE
     Dosage: 4MG
     Route: 048
     Dates: start: 20140306, end: 20140408
  13. TAKEPRON [Concomitant]
     Active Substance: LANSOPRAZOLE
     Dosage: 30MG
     Route: 048
     Dates: end: 20140408
  14. MORPHINE [Concomitant]
     Active Substance: MORPHINE
     Dosage: 1.5MG
     Route: 058
     Dates: start: 20140407, end: 20140408

REACTIONS (1)
  - Squamous cell carcinoma of lung [Fatal]

NARRATIVE: CASE EVENT DATE: 20140409
